FAERS Safety Report 13381746 (Version 1)
Quarter: 2017Q1

REPORT INFORMATION
  Report Type: Spontaneous
  Country: US (occurrence: US)
  Receive Date: 20170329
  Receipt Date: 20170329
  Transmission Date: 20170429
  Serious: Yes (Life-Threatening, Hospitalization)
  Sender: FDA-Public Use
  Company Number: US-VALIDUS PHARMACEUTICALS LLC-US-2017VAL000438

PATIENT
  Age: 17 Year
  Sex: Male

DRUGS (2)
  1. METOPROLOL TARTRATE. [Suspect]
     Active Substance: METOPROLOL TARTRATE
     Indication: PRODUCT USED FOR UNKNOWN INDICATION
     Dosage: UNK
  2. AMLODIPINE [Suspect]
     Active Substance: AMLODIPINE BESYLATE
     Indication: PRODUCT USED FOR UNKNOWN INDICATION
     Dosage: UNK

REACTIONS (12)
  - Gait disturbance [Unknown]
  - Dysarthria [Unknown]
  - Overdose [Unknown]
  - Mental status changes [Not Recovered/Not Resolved]
  - Suicide attempt [Unknown]
  - Cardiac arrest [Recovered/Resolved]
  - Bradycardia [Unknown]
  - Lethargy [Unknown]
  - Hypotension [Not Recovered/Not Resolved]
  - Atrioventricular block first degree [Unknown]
  - Acidosis [Unknown]
  - Circulatory collapse [Unknown]
